FAERS Safety Report 23960111 (Version 2)
Quarter: 2024Q3

REPORT INFORMATION
  Report Type: Report from Study
  Country: US (occurrence: US)
  Receive Date: 20240611
  Receipt Date: 20240724
  Transmission Date: 20241017
  Serious: No
  Sender: ROCHE
  Company Number: US-ROCHE-3579831

PATIENT
  Age: 58 Year
  Sex: Male

DRUGS (1)
  1. OCREVUS [Suspect]
     Active Substance: OCRELIZUMAB
     Indication: Multiple sclerosis
     Dosage: MORE DOSAGE INFORMATION IS 300 MG SINGLE-USE VIAL
     Route: 065
     Dates: end: 20220520

REACTIONS (1)
  - COVID-19 [Unknown]
